FAERS Safety Report 24904948 (Version 2)
Quarter: 2025Q3

REPORT INFORMATION
  Report Type: Spontaneous
  Country: CH (occurrence: CH)
  Receive Date: 20250130
  Receipt Date: 20250809
  Transmission Date: 20251020
  Serious: Yes (Hospitalization, Other)
  Sender: ALEXION PHARMACEUTICALS
  Company Number: None

PATIENT
  Age: 38 Year
  Sex: Male

DRUGS (40)
  1. ESOMEPRAZOLE [Suspect]
     Active Substance: ESOMEPRAZOLE
     Indication: Product used for unknown indication
     Dosage: 20 MILLIGRAM, 1/DAY
     Dates: start: 20241024, end: 20241024
  2. ESOMEPRAZOLE [Suspect]
     Active Substance: ESOMEPRAZOLE
     Dosage: 20 MILLIGRAM, 1/DAY
     Dates: start: 20241104, end: 20241211
  3. ENOXAPARIN [Suspect]
     Active Substance: ENOXAPARIN
     Indication: Product used for unknown indication
  4. PIPERACILLIN AND TAZOBACTAM [Suspect]
     Active Substance: PIPERACILLIN SODIUM\TAZOBACTAM SODIUM
     Indication: Product used for unknown indication
     Dosage: 4.5 GRAM, EVERY 6 HRS
     Dates: start: 20241029, end: 20241211
  5. PIPERACILLIN AND TAZOBACTAM [Suspect]
     Active Substance: PIPERACILLIN SODIUM\TAZOBACTAM SODIUM
     Dosage: 4.5 GRAM, EVERY 8 HRS
     Dates: start: 20241212
  6. VANCOMYCIN [Suspect]
     Active Substance: VANCOMYCIN
     Indication: Product used for unknown indication
     Dosage: 1250 MILLIGRAM, EVERY 12 HRS
     Dates: start: 20241029, end: 20241210
  7. DAFALGAN [Suspect]
     Active Substance: ACETAMINOPHEN
     Indication: Product used for unknown indication
     Dosage: 1000 MILLIGRAM, EVERY 8 HRS
     Dates: start: 20241024, end: 20241204
  8. CRESEMBA [Suspect]
     Active Substance: ISAVUCONAZONIUM SULFATE
     Indication: Product used for unknown indication
     Dosage: 200 MILLIGRAM, 1/DAY
     Dates: start: 20241113, end: 20241130
  9. CRESEMBA [Suspect]
     Active Substance: ISAVUCONAZONIUM SULFATE
     Dosage: 300 MILLIGRAM, 1/DAY
     Dates: start: 20241201, end: 20241203
  10. CRESEMBA [Suspect]
     Active Substance: ISAVUCONAZONIUM SULFATE
     Dosage: 200 MILLIGRAM, 1/DAY
     Dates: start: 20241204
  11. GABAPENTIN [Concomitant]
     Active Substance: GABAPENTIN
     Indication: Analgesic therapy
     Dosage: 300 MILLIGRAM, EVERY 8 HRS
     Dates: start: 20241031
  12. MORPHINE [Concomitant]
     Active Substance: MORPHINE
     Indication: Prophylaxis
  13. TIZANIDINE [Concomitant]
     Active Substance: TIZANIDINE
     Dosage: 2 MILLIGRAM, 1/DAY
     Dates: start: 20241130, end: 20241203
  14. Bioflorin [Concomitant]
  15. Bioflorin [Concomitant]
  16. BUTYLSCOPOLAMINE [Concomitant]
     Active Substance: BUTYLSCOPOLAMINE
     Dates: start: 20241203, end: 20241203
  17. BUTYLSCOPOLAMINE [Concomitant]
     Active Substance: BUTYLSCOPOLAMINE
     Dates: start: 20241130, end: 20241203
  18. POTASSIUM [Concomitant]
     Active Substance: POTASSIUM
     Dosage: 30 MILLIMOLE, EVERY 12 HRS
     Dates: start: 20241205, end: 20241205
  19. POTASSIUM [Concomitant]
     Active Substance: POTASSIUM
  20. CLONIDINE [Concomitant]
     Active Substance: CLONIDINE
     Dates: start: 20241028, end: 20241102
  21. CLONIDINE [Concomitant]
     Active Substance: CLONIDINE
  22. MELATONIN [Concomitant]
     Active Substance: MELATONIN
  23. ALBUMIN HUMAN [Concomitant]
     Active Substance: ALBUMIN HUMAN
  24. ASPIRIN [Concomitant]
     Active Substance: ASPIRIN
  25. FOLIC ACID [Concomitant]
     Active Substance: FOLIC ACID
     Dosage: 5 MILLIGRAM, 1/DAY
  26. MAGNESIUM [Concomitant]
     Active Substance: MAGNESIUM
  27. PREDNISONE [Concomitant]
     Active Substance: PREDNISONE
     Dates: start: 20241213, end: 20241216
  28. PREDNISONE [Concomitant]
     Active Substance: PREDNISONE
     Dates: start: 20241217, end: 20241219
  29. BENRALIZUMAB [Concomitant]
     Active Substance: BENRALIZUMAB
  30. CLOBETASOL [Concomitant]
     Active Substance: CLOBETASOL
  31. MOMETASONE [Concomitant]
     Active Substance: MOMETASONE
  32. DAPTOMYCIN [Concomitant]
     Active Substance: DAPTOMYCIN
  33. FONDAPARINUX [Concomitant]
     Active Substance: FONDAPARINUX
  34. ASPIRIN [Concomitant]
     Active Substance: ASPIRIN
  35. ESOMEPRAZOLE [Concomitant]
     Active Substance: ESOMEPRAZOLE
  36. FAMOTIDINE [Concomitant]
     Active Substance: FAMOTIDINE
  37. AMOXICILLIN\CLAVULANIC ACID [Concomitant]
     Active Substance: AMOXICILLIN\CLAVULANIC ACID
     Dates: start: 20241024, end: 20241029
  38. TIZANIDINE [Concomitant]
     Active Substance: TIZANIDINE
     Dates: start: 20241130, end: 20241203
  39. Dexeryl [Concomitant]
  40. Bepanthen [Concomitant]

REACTIONS (7)
  - Eosinophilia [Recovered/Resolved]
  - Rash maculo-papular [Recovering/Resolving]
  - Abdominal pain [Recovering/Resolving]
  - Nausea [Recovered/Resolved]
  - Drug reaction with eosinophilia and systemic symptoms [Recovering/Resolving]
  - Pyrexia [Recovering/Resolving]
  - Mixed liver injury [Recovering/Resolving]

NARRATIVE: CASE EVENT DATE: 20241126
